FAERS Safety Report 4722429-4 (Version None)
Quarter: 2005Q3

REPORT INFORMATION
  Report Type: 
  Country: None (occurrence: None)
  Receive Date: 20050722
  Receipt Date: 20050415
  Transmission Date: 20060218
  Serious: No
  Sender: FDA-Public Use
  Company Number: US-GLAXOSMITHKLINE-A0554407A

PATIENT
  Sex: Female

DRUGS (13)
  1. AVANDIA [Suspect]
     Route: 048
  2. DETROL [Concomitant]
  3. LIPITOR [Concomitant]
  4. ACCUPRIL [Concomitant]
  5. ESTRADIOL [Concomitant]
  6. DICLOFENAC SODIUM [Concomitant]
  7. TRAMADOL HCL [Concomitant]
  8. EFFEXOR [Concomitant]
  9. KLONOPIN [Concomitant]
  10. GLYBURIDE [Concomitant]
  11. INSULIN [Concomitant]
  12. ATROVENT [Concomitant]
  13. RANITIDINE [Concomitant]

REACTIONS (1)
  - DRUG INEFFECTIVE [None]
